FAERS Safety Report 8555552-7 (Version None)
Quarter: 2012Q3

REPORT INFORMATION
  Report Type: 
  Country: None (occurrence: None)
  Receive Date: 20120731
  Receipt Date: 20110825
  Transmission Date: 20120928
  Serious: No
  Sender: FDA-Public Use
  Company Number: US-ASTRAZENECA-2010SE47135

PATIENT
  Age: 57 Year
  Sex: Male
  Weight: 68 kg

DRUGS (10)
  1. SEROQUEL [Suspect]
     Indication: BIPOLAR DISORDER
     Route: 048
     Dates: start: 20080101
  2. KLONOPIN [Concomitant]
     Route: 048
  3. DANTROLENE SODIUM [Concomitant]
     Indication: MULTIPLE SCLEROSIS
     Route: 048
  4. SEROQUEL [Suspect]
     Route: 048
  5. SEROQUEL [Suspect]
     Indication: AFFECTIVE DISORDER
     Route: 048
     Dates: start: 20080101
  6. SEROQUEL [Suspect]
     Route: 048
  7. SEROQUEL [Suspect]
     Indication: INSOMNIA
     Route: 048
     Dates: start: 20080101
  8. SEROQUEL [Suspect]
     Route: 048
  9. DOXEPIN [Concomitant]
     Route: 048
  10. DILAUDID [Concomitant]
     Route: 048

REACTIONS (7)
  - DRUG DOSE OMISSION [None]
  - NAUSEA [None]
  - INSOMNIA [None]
  - DIZZINESS [None]
  - MALAISE [None]
  - WRONG TECHNIQUE IN DRUG USAGE PROCESS [None]
  - SOCIAL AVOIDANT BEHAVIOUR [None]
